FAERS Safety Report 5105668-2 (Version None)
Quarter: 2006Q3

REPORT INFORMATION
  Report Type: 
  Country: None (occurrence: None)
  Receive Date: 20060915
  Receipt Date: 20060901
  Transmission Date: 20061208
  Serious: Yes (Hospitalization, Other)
  Sender: FDA-Public Use
  Company Number: DE-BRISTOL-MYERS SQUIBB COMPANY-13508502

PATIENT
  Age: 75 Year
  Sex: Male

DRUGS (2)
  1. HOLOXAN [Suspect]
     Dates: start: 20060828
  2. CYTARABINE [Concomitant]

REACTIONS (3)
  - CONFUSIONAL STATE [None]
  - CONVULSION [None]
  - ENCEPHALOPATHY [None]
